FAERS Safety Report 7924345-3 (Version None)
Quarter: 2011Q4

REPORT INFORMATION
  Report Type: 
  Country: None (occurrence: None)
  Receive Date: 20111117
  Receipt Date: 20110322
  Transmission Date: 20120403
  Serious: No
  Sender: FDA-Public Use
  Company Number: US-AMGEN-USASP2011015512

PATIENT
  Age: 59 Year
  Sex: Male
  Weight: 136.5 kg

DRUGS (6)
  1. CLOBETASOL [Concomitant]
     Dosage: .05 %, UNK
  2. CITRUCEL [Concomitant]
     Dosage: 500 MG, UNK
     Route: 048
  3. ENBREL [Suspect]
     Indication: PRODUCT USED FOR UNKNOWN INDICATION
     Dosage: 50 MG, 2 TIMES/WK
     Route: 058
  4. CITRACAL PLUS [Concomitant]
     Route: 048
  5. ATENOLOL [Concomitant]
     Dosage: 25 MG, UNK
     Route: 048
  6. TAZORAC [Concomitant]
     Dosage: 0.1 %, UNK
     Route: 061

REACTIONS (1)
  - MICTURITION URGENCY [None]
